FAERS Safety Report 6266303-3 (Version None)
Quarter: 2009Q3

REPORT INFORMATION
  Report Type: 
  Country: None (occurrence: None)
  Receive Date: 20090713
  Receipt Date: 20090706
  Transmission Date: 20100115
  Serious: Yes (Hospitalization)
  Sender: FDA-Public Use
  Company Number: PHHY2009JP18669

PATIENT
  Sex: Female
  Weight: 30 kg

DRUGS (2)
  1. VOLTAREN [Suspect]
     Indication: PAIN
     Dosage: 12.5 MG, BID
     Route: 054
     Dates: start: 20060101
  2. ADEFURONIC [Suspect]
     Indication: PAIN
     Dosage: UNK
     Dates: start: 20081029, end: 20081129

REACTIONS (7)
  - ANAEMIA [None]
  - DUODENAL STENOSIS [None]
  - DUODENAL ULCER [None]
  - NAUSEA [None]
  - PAIN [None]
  - VOMITING [None]
  - WEIGHT DECREASED [None]
